FAERS Safety Report 6160137-6 (Version None)
Quarter: 2009Q2

REPORT INFORMATION
  Report Type: 
  Country: None (occurrence: None)
  Receive Date: 20090420
  Receipt Date: 20090410
  Transmission Date: 20091009
  Serious: Yes (Death, Hospitalization)
  Sender: FDA-Public Use
  Company Number: A0718448A

PATIENT
  Age: 58 Year
  Sex: Male
  Weight: 93.2 kg

DRUGS (9)
  1. AVANDIA [Suspect]
     Dosage: 4MG PER DAY
     Route: 048
     Dates: start: 20001030
  2. AVANDAMET [Suspect]
     Dates: start: 20040913
  3. STARLIX [Concomitant]
  4. LANTUS [Concomitant]
  5. AMARYL [Concomitant]
  6. GLUCOTROL XL [Concomitant]
  7. INSULIN [Concomitant]
  8. LIPITOR [Concomitant]
  9. TRICOR [Concomitant]

REACTIONS (6)
  - CARDIAC FAILURE CONGESTIVE [None]
  - CEREBRAL INFARCTION [None]
  - CHRONIC OBSTRUCTIVE PULMONARY DISEASE [None]
  - CORONARY ARTERY DISEASE [None]
  - MYOCARDIAL INFARCTION [None]
  - TRANSIENT ISCHAEMIC ATTACK [None]
